FAERS Safety Report 9143822 (Version 4)
Quarter: 2013Q2

REPORT INFORMATION
  Report Type: Report from Study
  Country: US (occurrence: US)
  Receive Date: 20130306
  Receipt Date: 20130524
  Transmission Date: 20140414
  Serious: Yes (Hospitalization)
  Sender: FDA-Public Use
  Company Number: US-ROCHE-1197833

PATIENT
  Age: 51 Year
  Sex: Male
  Weight: 66.4 kg

DRUGS (8)
  1. TOCILIZUMAB [Suspect]
     Indication: TRANSPLANT REJECTION
     Route: 042
     Dates: start: 20130209
  2. TOCILIZUMAB [Suspect]
     Dosage: DOSE REDUCED
     Route: 042
     Dates: start: 20130502
  3. PROGRAF [Concomitant]
     Dosage: 3 MG IN MORNING
     Route: 048
  4. PROGRAF [Concomitant]
     Dosage: 2 MG IN PM.
     Route: 048
  5. PROGRAF [Concomitant]
     Dosage: 2 MG AT AM (REDUCED)
     Route: 048
  6. PROGRAF [Concomitant]
     Dosage: 1 MG AT PM (REDUCED)
     Route: 048
  7. PREDNISOLONE [Concomitant]
     Route: 048
  8. PREDNISOLONE [Concomitant]
     Route: 048

REACTIONS (5)
  - Small intestinal obstruction [Unknown]
  - Colitis ischaemic [Unknown]
  - Enterocolitis infectious [Recovering/Resolving]
  - Intestinal perforation [Recovering/Resolving]
  - Abdominal pain [Unknown]
